FAERS Safety Report 6239179-8 (Version None)
Quarter: 2009Q2

REPORT INFORMATION
  Report Type: 
  Country: None (occurrence: None)
  Receive Date: 20090618
  Receipt Date: 20090618
  Transmission Date: 20091009
  Serious: Yes (Other)
  Sender: FDA-Public Use
  Company Number: None

PATIENT
  Sex: Male
  Weight: 90.7194 kg

DRUGS (9)
  1. ZICAM, .50 FL OZ, MATRIXX INITIATIVES, INC [Suspect]
     Indication: NASOPHARYNGITIS
     Dosage: 1 SQUIRT EACH NOSE UNTIL USE BOTTLE 3 TIMES/YR 2 OR 3 TIMES/DAY NOSE/SPRAY
     Route: 045
     Dates: start: 20031101
  2. ZICAM, .50 FL OZ, MATRIXX INITIATIVES, INC [Suspect]
     Indication: NASOPHARYNGITIS
     Dosage: 1 SQUIRT EACH NOSE UNTIL USE BOTTLE 3 TIMES/YR 2 OR 3 TIMES/DAY NOSE/SPRAY
     Route: 045
     Dates: start: 20040201
  3. ZICAM, .50 FL OZ, MATRIXX INITIATIVES, INC [Suspect]
     Indication: NASOPHARYNGITIS
     Dosage: 1 SQUIRT EACH NOSE UNTIL USE BOTTLE 3 TIMES/YR 2 OR 3 TIMES/DAY NOSE/SPRAY
     Route: 045
     Dates: start: 20040801
  4. ZICAM, .50 FL OZ, MATRIXX INITIATIVES, INC [Suspect]
     Indication: NASOPHARYNGITIS
     Dosage: 1 SQUIRT EACH NOSE UNTIL USE BOTTLE 3 TIMES/YR 2 OR 3 TIMES/DAY NOSE/SPRAY
     Route: 045
     Dates: start: 20050101
  5. ZICAM, .50 FL OZ, MATRIXX INITIATIVES, INC [Suspect]
     Indication: NASOPHARYNGITIS
     Dosage: 1 SQUIRT EACH NOSE UNTIL USE BOTTLE 3 TIMES/YR 2 OR 3 TIMES/DAY NOSE/SPRAY
     Route: 045
     Dates: start: 20050701
  6. ZICAM, .50 FL OZ, MATRIXX INITIATIVES, INC [Suspect]
     Indication: NASOPHARYNGITIS
     Dosage: 1 SQUIRT EACH NOSE UNTIL USE BOTTLE 3 TIMES/YR 2 OR 3 TIMES/DAY NOSE/SPRAY
     Route: 045
     Dates: start: 20051201
  7. ZICAM, .50 FL OZ, MATRIXX INITIATIVES, INC [Suspect]
     Indication: NASOPHARYNGITIS
     Dosage: 1 SQUIRT EACH NOSE UNTIL USE BOTTLE 3 TIMES/YR 2 OR 3 TIMES/DAY NOSE/SPRAY
     Route: 045
     Dates: start: 20060101
  8. ZICAM, .50 FL OZ, MATRIXX INITIATIVES, INC [Suspect]
     Indication: NASOPHARYNGITIS
     Dosage: 1 SQUIRT EACH NOSE UNTIL USE BOTTLE 3 TIMES/YR 2 OR 3 TIMES/DAY NOSE/SPRAY
     Route: 045
     Dates: start: 20060701
  9. ZICAM, .50 FL OZ, MATRIXX INITIATIVES, INC [Suspect]
     Indication: NASOPHARYNGITIS
     Dosage: 1 SQUIRT EACH NOSE UNTIL USE BOTTLE 3 TIMES/YR 2 OR 3 TIMES/DAY NOSE/SPRAY
     Route: 045
     Dates: start: 20060901

REACTIONS (6)
  - AGEUSIA [None]
  - ANOSMIA [None]
  - BURNING SENSATION [None]
  - HYPOGEUSIA [None]
  - HYPOSMIA [None]
  - NASAL MUCOSAL DISCOLOURATION [None]
